FAERS Safety Report 13100875 (Version 4)
Quarter: 2017Q3

REPORT INFORMATION
  Report Type: Spontaneous
  Country: PT (occurrence: PT)
  Receive Date: 20170110
  Receipt Date: 20170818
  Transmission Date: 20171127
  Serious: Yes (Other)
  Sender: FDA-Public Use
  Company Number: PT-SA-2017SA001825

PATIENT
  Age: 44 Year
  Sex: Female
  Weight: 75.5 kg

DRUGS (8)
  1. TRITICUM [Concomitant]
     Indication: DEPRESSION
     Dates: start: 2014
  2. TOPAMAX [Concomitant]
     Active Substance: TOPIRAMATE
     Route: 048
     Dates: start: 2014
  3. PROGESTERON [Concomitant]
     Active Substance: PROGESTERONE
     Dosage: 15 DAYS/MONTH
  4. CIPRALEX [Concomitant]
     Active Substance: ESCITALOPRAM OXALATE
     Indication: DEPRESSION
     Route: 048
     Dates: start: 2014
  5. MOLINAR [Concomitant]
     Indication: VITAMIN D DEFICIENCY
     Route: 048
     Dates: start: 2016
  6. ADT [Concomitant]
     Dates: start: 2014
  7. AUBAGIO [Suspect]
     Active Substance: TERIFLUNOMIDE
     Indication: MULTIPLE SCLEROSIS
     Dosage: VALIDADE: 31-01-2019
     Route: 048
     Dates: start: 20160909
  8. BETAHISTINE [Concomitant]
     Active Substance: BETAHISTINE

REACTIONS (6)
  - Respiratory tract infection [Recovered/Resolved]
  - Gastrointestinal disorder [Recovered/Resolved]
  - Menstrual disorder [Recovered/Resolved]
  - Alopecia [Not Recovered/Not Resolved]
  - Urinary tract infection [Recovered/Resolved]
  - Menstruation delayed [Recovered/Resolved]

NARRATIVE: CASE EVENT DATE: 201609
